FAERS Safety Report 5209601-4 (Version None)
Quarter: 2007Q1

REPORT INFORMATION
  Report Type: 
  Country: None (occurrence: None)
  Receive Date: 20070111
  Receipt Date: 20070102
  Transmission Date: 20070707
  Serious: Yes (Life-Threatening, Hospitalization)
  Sender: FDA-Public Use
  Company Number: SPVI-2007-00025

PATIENT
  Age: 57 Year
  Sex: Male
  Weight: 86.2 kg

DRUGS (1)
  1. PENTASA [Suspect]
     Indication: CROHN'S DISEASE
     Dates: start: 20061101, end: 20061201

REACTIONS (9)
  - ACUTE RESPIRATORY DISTRESS SYNDROME [None]
  - BACK PAIN [None]
  - CHEST PAIN [None]
  - DRUG ADMINISTRATION ERROR [None]
  - HEADACHE [None]
  - NECK PAIN [None]
  - PNEUMONIA [None]
  - RASH [None]
  - WEIGHT DECREASED [None]
